FAERS Safety Report 15524244 (Version 6)
Quarter: 2019Q3

REPORT INFORMATION
  Report Type: Spontaneous
  Country: US (occurrence: US)
  Receive Date: 20181018
  Receipt Date: 20190926
  Transmission Date: 20191004
  Serious: Yes (Hospitalization, Disabling)
  Sender: FDA-Public Use
  Company Number: US-EMD SERONO-7010216

PATIENT
  Age: 59 Year
  Sex: Female
  Weight: 83 kg

DRUGS (3)
  1. VANCOMYCIN [Suspect]
     Active Substance: VANCOMYCIN
     Indication: COLOSTOMY INFECTION
  2. REBIF [Suspect]
     Active Substance: INTERFERON BETA-1A
     Indication: MULTIPLE SCLEROSIS
     Route: 058
     Dates: start: 20100101
  3. VANCOMYCIN [Suspect]
     Active Substance: VANCOMYCIN
     Indication: DECUBITUS ULCER
     Dates: start: 2010

REACTIONS (13)
  - Volvulus [Not Recovered/Not Resolved]
  - Sepsis [Recovering/Resolving]
  - Multiple sclerosis [Unknown]
  - Weight decreased [Unknown]
  - Skin mass [Not Recovered/Not Resolved]
  - Colostomy infection [Unknown]
  - Bedridden [Not Recovered/Not Resolved]
  - Fatigue [Unknown]
  - Clostridium difficile infection [Recovered/Resolved]
  - Decubitus ulcer [Recovering/Resolving]
  - Confusional state [Unknown]
  - Abnormal faeces [Not Recovered/Not Resolved]
  - Urinary tract infection [Unknown]

NARRATIVE: CASE EVENT DATE: 2010
